FAERS Safety Report 10076447 (Version 2)
Quarter: 2014Q2

REPORT INFORMATION
  Report Type: Spontaneous
  Country: IE (occurrence: IE)
  Receive Date: 20140414
  Receipt Date: 20140512
  Transmission Date: 20141212
  Serious: Yes (Hospitalization)
  Sender: FDA-Public Use
  Company Number: IE-MALLINCKRODT-T201401813

PATIENT
  Age: 67 Year
  Sex: Female

DRUGS (9)
  1. OPTIRAY 350 [Suspect]
     Indication: ANGIOGRAM PULMONARY
     Dosage: 80 ML, WARMED, OPTIVANTAGE INJECTOR
     Route: 042
     Dates: start: 20140228, end: 20140228
  2. LYRICA [Concomitant]
     Dosage: 100 MG, UNK
  3. PROTIUM [Concomitant]
     Dosage: 40 MG, UNK
  4. AMITRIPTYLINE [Concomitant]
     Dosage: 50 MG, UNK
  5. BISOPROLOL [Concomitant]
     Dosage: 2.5 MG, UNK
  6. XARELTO [Concomitant]
     Dosage: 15 MG, UNK
  7. FENTANYL [Concomitant]
     Dosage: 12 MCG, UNK
  8. TAZ [Concomitant]
     Route: 042
  9. PARACETAMOL [Concomitant]
     Route: 042

REACTIONS (7)
  - Unresponsive to stimuli [Recovered/Resolved]
  - Urinary incontinence [Recovered/Resolved]
  - Cough [Recovered/Resolved]
  - Pallor [Recovered/Resolved]
  - Cyanosis [Recovered/Resolved]
  - Cold sweat [Recovered/Resolved]
  - Agitation [Recovered/Resolved]
